FAERS Safety Report 14391744 (Version 2)
Quarter: 2018Q1

REPORT INFORMATION
  Report Type: Report from Study
  Country: DE (occurrence: DE)
  Receive Date: 20180116
  Receipt Date: 20180319
  Transmission Date: 20180509
  Serious: Yes (Death, Life-Threatening, Hospitalization, Other)
  Sender: FDA-Public Use
  Company Number: DE-PFIZER INC-2018015560

PATIENT
  Sex: Female
  Weight: 80.5 kg

DRUGS (8)
  1. TAZOBAC [Suspect]
     Active Substance: PIPERACILLIN SODIUM\TAZOBACTAM SODIUM
     Indication: UROSEPSIS
     Dosage: 4.5 G, TID
     Route: 042
     Dates: start: 20161012, end: 20161114
  2. AFINITOR [Suspect]
     Active Substance: EVEROLIMUS
     Indication: BREAST CANCER METASTATIC
     Dosage: 5 MG, QD
     Route: 048
     Dates: start: 20150202, end: 20150222
  3. AFINITOR [Suspect]
     Active Substance: EVEROLIMUS
     Dosage: 10 MG, QD
     Route: 048
     Dates: start: 20160107, end: 20161020
  4. TAZOBAC [Suspect]
     Active Substance: PIPERACILLIN SODIUM\TAZOBACTAM SODIUM
     Indication: ACUTE KIDNEY INJURY
     Dosage: UNK
     Dates: start: 20161119
  5. AFINITOR [Suspect]
     Active Substance: EVEROLIMUS
     Dosage: 5 MG, QD
     Route: 048
     Dates: start: 20150907, end: 20150913
  6. AFINITOR [Suspect]
     Active Substance: EVEROLIMUS
     Dosage: 7.5 MG, QD
     Route: 048
     Dates: start: 20150914, end: 20160106
  7. EXEMESTANE 1A PHARMA [Suspect]
     Active Substance: EXEMESTANE
     Indication: BREAST CANCER METASTATIC
     Dosage: 25 MG, QD
     Route: 048
     Dates: start: 20150202, end: 20161115
  8. AFINITOR [Suspect]
     Active Substance: EVEROLIMUS
     Dosage: 7.5 MG, QD
     Route: 048
     Dates: start: 20150223, end: 20150906

REACTIONS (20)
  - Blood lactate dehydrogenase increased [Unknown]
  - Venous thrombosis limb [Not Recovered/Not Resolved]
  - Blood glucose increased [Recovered/Resolved]
  - Faecaloma [Fatal]
  - Infection [Unknown]
  - Acute kidney injury [Fatal]
  - Pulmonary embolism [Not Recovered/Not Resolved]
  - Gamma-glutamyltransferase increased [Unknown]
  - Oedema [Fatal]
  - Metastases to peritoneum [Fatal]
  - Pyrexia [Fatal]
  - Diabetes mellitus [Unknown]
  - Metastases to pleura [Not Recovered/Not Resolved]
  - Ileus [Fatal]
  - Malignant neoplasm progression [Fatal]
  - Urine output decreased [Fatal]
  - Haemoglobin decreased [Unknown]
  - Iron deficiency [Recovered/Resolved]
  - Platelet count increased [Unknown]
  - Urosepsis [Recovered/Resolved]

NARRATIVE: CASE EVENT DATE: 20160330
